FAERS Safety Report 24006204 (Version 1)
Quarter: 2024Q2

REPORT INFORMATION
  Report Type: Spontaneous
  Country: US (occurrence: None)
  Receive Date: 20240622
  Receipt Date: 20240622
  Transmission Date: 20240715
  Serious: Yes (Other)
  Sender: FDA-Public Use
  Company Number: None

PATIENT
  Age: 41 Year
  Sex: Male
  Weight: 81 kg

DRUGS (1)
  1. TIANEPTINE [Suspect]
     Active Substance: TIANEPTINE
     Indication: Substance use
     Dosage: FREQUENCY : 3 TIMES A DAY?
     Route: 048

REACTIONS (3)
  - Product quality issue [None]
  - Near death experience [None]
  - Drug dependence [None]

NARRATIVE: CASE EVENT DATE: 20240504
